FAERS Safety Report 5772205-9 (Version None)
Quarter: 2008Q2

REPORT INFORMATION
  Report Type: 
  Country: None (occurrence: None)
  Receive Date: 20080613
  Receipt Date: 20080605
  Transmission Date: 20081010
  Serious: Yes (Other)
  Sender: FDA-Public Use
  Company Number: US-BAYER-200815808NA

PATIENT
  Age: 35 Year
  Sex: Female

DRUGS (1)
  1. ULTRAVIST 370 [Suspect]
     Indication: COMPUTERISED TOMOGRAM ABDOMEN
     Dosage: TOTAL DAILY DOSE: 100 ML
     Route: 042
     Dates: start: 20070922, end: 20070922

REACTIONS (3)
  - ANAPHYLACTIC REACTION [None]
  - LARYNGOSPASM [None]
  - URTICARIA [None]
